FAERS Safety Report 9095528 (Version 1)
Quarter: 2013Q1

REPORT INFORMATION
  Report Type: Spontaneous
  Country: None (occurrence: None)
  Receive Date: 20130123
  Receipt Date: 20130123
  Transmission Date: 20140127
  Serious: Yes (Other)
  Sender: FDA-Public Use
  Company Number: 2013/008

PATIENT
  Age: 46 Year
  Sex: Male
  Weight: 75 kg

DRUGS (7)
  1. AMLODIPINE (NO PREF. NAME) 5 MG [Suspect]
  2. TELAPREVIR (INCIVO) [Concomitant]
  3. RIBAVIRIN (COPEGUS) [Concomitant]
  4. PEGINTERFERON ALFA-2A (PEGASYS) [Concomitant]
  5. RAMIPRIL [Concomitant]
  6. INSULIN GLARGINE (LANTUS) [Concomitant]
  7. INSULIN ASPART (NOVORAPID) [Concomitant]

REACTIONS (5)
  - Electrocardiogram QT prolonged [None]
  - Haemoglobin decreased [None]
  - Vision blurred [None]
  - Rash [None]
  - Drug interaction [None]
